FAERS Safety Report 8989031 (Version 3)
Quarter: 2014Q1

REPORT INFORMATION
  Report Type: Spontaneous
  Country: GB (occurrence: GB)
  Receive Date: 20121228
  Receipt Date: 20140129
  Transmission Date: 20141002
  Serious: Yes (Disabling, Other)
  Sender: FDA-Public Use
  Company Number: PHFR2012GB006105

PATIENT
  Age: 53 Year
  Sex: Male

DRUGS (16)
  1. CLOZARIL [Suspect]
     Indication: SCHIZOPHRENIA
     Dosage: UNK
     Route: 048
     Dates: start: 20031030
  2. CLOZARIL [Suspect]
     Dosage: 500 MG, UNK
     Route: 048
  3. CLOZARIL [Suspect]
     Dosage: 250 MG, BID
     Route: 048
     Dates: start: 2007
  4. HYOSCINE HYDROBROMIDE [Concomitant]
     Indication: SALIVARY HYPERSECRETION
     Dosage: 900 MG, UNK
     Route: 048
  5. FERROUS FUMARATE [Concomitant]
     Indication: ANAEMIA
     Dosage: 210 MG, TID
     Route: 048
  6. SIMVASTATIN [Concomitant]
     Indication: BLOOD CHOLESTEROL INCREASED
     Dosage: 40 UG, QD
     Route: 048
  7. PROCHLORPERAZINE [Concomitant]
     Dosage: 5 MG, TID
     Route: 048
  8. AMLODIPINE [Concomitant]
     Indication: ESSENTIAL HYPERTENSION
     Dosage: 5 MG, QD
     Route: 048
  9. AMLODIPINE [Concomitant]
     Indication: HYPERTENSION
  10. DOCUSATE SODIUM [Concomitant]
     Indication: CONSTIPATION
     Dosage: 100 MG, QD
     Route: 048
  11. LANSOPRAZOLE [Concomitant]
     Indication: GASTROOESOPHAGEAL REFLUX DISEASE
     Dosage: 30 MG, QD
     Route: 048
  12. GLICLAZIDE [Concomitant]
     Indication: DIABETES MELLITUS
     Dosage: 80 MG, BID
     Route: 048
  13. METFORMIN [Concomitant]
     Indication: DIABETES MELLITUS
     Dosage: 500 MG, BID
     Route: 048
  14. RAMIPRIL [Concomitant]
     Indication: HYPERTENSION
     Dosage: 5 MG, BID
     Route: 048
  15. ASPIRIN [Concomitant]
     Dosage: 75 MG, QD
     Route: 048
  16. SALBUTAMOL [Concomitant]
     Dosage: UNK UKN, PRN
     Route: 055

REACTIONS (7)
  - Subdural haematoma [Unknown]
  - Chronic obstructive pulmonary disease [Recovered/Resolved with Sequelae]
  - Subdural haemorrhage [Recovered/Resolved with Sequelae]
  - Essential hypertension [Recovered/Resolved with Sequelae]
  - Serum ferritin decreased [Recovering/Resolving]
  - Platelet count decreased [Recovering/Resolving]
  - Haemoglobin decreased [Unknown]
